FAERS Safety Report 8707352 (Version 7)
Quarter: 2012Q4

REPORT INFORMATION
  Report Type: 
  Country: JP (occurrence: JP)
  Receive Date: 20120803
  Receipt Date: 20121212
  Transmission Date: 20130627
  Serious: Yes (Death, Life-Threatening, Hospitalization, Disabling)
  Sender: FDA-Public Use
  Company Number: JP-ABBOTT-12P-087-0963750-00

PATIENT
  Age: 8 Year
  Sex: Female
  Weight: 30 kg

DRUGS (6)
  1. KLARICID [Suspect]
     Indication: PYREXIA
  2. ANHIBA [Suspect]
     Indication: PYREXIA
     Route: 054
  3. ANHIBA [Suspect]
  4. CALONAL [Suspect]
     Indication: PYREXIA
     Route: 048
  5. MUCODYNE [Suspect]
     Indication: PYREXIA
     Route: 048
  6. ALUSA [Suspect]
     Indication: PYREXIA
     Route: 048

REACTIONS (3)
  - Hepatitis fulminant [Fatal]
  - Transplant failure [Fatal]
  - Acute hepatic failure [Fatal]
